FAERS Safety Report 6435265-8 (Version None)
Quarter: 2009Q4

REPORT INFORMATION
  Report Type: 
  Country: None (occurrence: None)
  Receive Date: 20091110
  Receipt Date: 20091031
  Transmission Date: 20100525
  Serious: Yes (Hospitalization)
  Sender: FDA-Public Use
  Company Number: US-AMGEN-KDL367964

PATIENT
  Sex: Female
  Weight: 69.5 kg

DRUGS (6)
  1. ENBREL [Suspect]
     Indication: RHEUMATOID ARTHRITIS
     Route: 058
     Dates: start: 20030501
  2. ORAL CONTRACEPTIVE NOS [Concomitant]
  3. PREDNISONE [Concomitant]
     Route: 048
  4. VITAMIN TAB [Concomitant]
     Route: 048
  5. CALCIUM [Concomitant]
     Route: 048
  6. IRON [Concomitant]
     Route: 048

REACTIONS (8)
  - CAESAREAN SECTION [None]
  - CONDITION AGGRAVATED [None]
  - OLIGOHYDRAMNIOS [None]
  - PRE-ECLAMPSIA [None]
  - PREGNANCY ON CONTRACEPTIVE [None]
  - PREMATURE LABOUR [None]
  - RHEUMATOID ARTHRITIS [None]
  - SMEAR CERVIX ABNORMAL [None]
